FAERS Safety Report 9374461 (Version 1)
Quarter: 2013Q2

REPORT INFORMATION
  Report Type: Report from Study
  Country: CA (occurrence: CA)
  Receive Date: 20130628
  Receipt Date: 20130628
  Transmission Date: 20140414
  Serious: Yes (Other)
  Sender: FDA-Public Use
  Company Number: CA-JNJFOC-20130616961

PATIENT
  Sex: Male

DRUGS (2)
  1. STELARA [Suspect]
     Indication: PSORIATIC ARTHROPATHY
     Dates: start: 20130429
  2. STELARA [Suspect]
     Indication: PSORIATIC ARTHROPATHY
     Dates: start: 20130301

REACTIONS (2)
  - Pneumonia [Unknown]
  - Off label use [Unknown]
